FAERS Safety Report 4968555-6 (Version None)
Quarter: 2006Q2

REPORT INFORMATION
  Report Type: 
  Country: None (occurrence: None)
  Receive Date: 20060410
  Receipt Date: 20060315
  Transmission Date: 20061013
  Serious: Yes (Hospitalization)
  Sender: FDA-Public Use
  Company Number: DE-SANOFI-SYNTHELABO-A04200600303

PATIENT
  Sex: Female
  Weight: 45 kg

DRUGS (5)
  1. ELOXATIN [Suspect]
     Indication: COLON CANCER
     Route: 041
     Dates: start: 20060313, end: 20060313
  2. PREDNISOLONE [Concomitant]
     Indication: PREMEDICATION
     Route: 065
  3. KEVATRIL [Concomitant]
     Indication: PREMEDICATION
     Route: 065
  4. FLUOROURACIL [Concomitant]
     Indication: COLON CANCER
     Route: 041
     Dates: start: 20060301, end: 20060301
  5. FOLINSAEURE [Concomitant]
     Indication: COLON CANCER
     Route: 041
     Dates: start: 20060301, end: 20060301

REACTIONS (2)
  - CONCUSSION [None]
  - SYNCOPE [None]
